FAERS Safety Report 4638519-0 (Version None)
Quarter: 2005Q2

REPORT INFORMATION
  Report Type: 
  Country: None (occurrence: None)
  Receive Date: 20050418
  Receipt Date: 20050404
  Transmission Date: 20051028
  Serious: Yes (Hospitalization)
  Sender: FDA-Public Use
  Company Number: 2005055431

PATIENT
  Age: 67 Year
  Sex: Male

DRUGS (3)
  1. SULFASALAZINE [Suspect]
     Indication: ILL-DEFINED DISORDER
     Dosage: 3 GRAM (3 GRAM, DAILY), ORAL
     Route: 048
     Dates: start: 19910101, end: 20050123
  2. METHOTREXATE [Suspect]
     Indication: ILL-DEFINED DISORDER
     Dosage: 20 MG (20 MG, 1 IN 1 WK), SUBCUTANEOUS
     Route: 058
     Dates: start: 19910101, end: 20050113
  3. CORTICOSTEROIDS (CORTICOSTEROIDS) [Concomitant]

REACTIONS (4)
  - ACUTE CORONARY SYNDROME [None]
  - CULTURE POSITIVE [None]
  - HERPES SIMPLEX [None]
  - INTERSTITIAL LUNG DISEASE [None]
